FAERS Safety Report 17522014 (Version 1)
Quarter: 2020Q1

REPORT INFORMATION
  Report Type: Spontaneous
  Country: US (occurrence: US)
  Receive Date: 20200310
  Receipt Date: 20200310
  Transmission Date: 20200409
  Serious: No
  Sender: FDA-Public Use
  Company Number: US-FARMAPROD-201912-2065

PATIENT
  Sex: Male

DRUGS (1)
  1. OXERVATE [Suspect]
     Active Substance: CENEGERMIN-BKBJ
     Route: 047

REACTIONS (2)
  - Ocular hyperaemia [Unknown]
  - Eye pain [Unknown]
